FAERS Safety Report 18546316 (Version 1)
Quarter: 2020Q4

REPORT INFORMATION
  Report Type: Spontaneous
  Country: US (occurrence: US)
  Receive Date: 20201125
  Receipt Date: 20201125
  Transmission Date: 20210114
  Serious: No
  Sender: FDA-Public Use
  Company Number: US-PFIZER INC-2020104717

PATIENT
  Age: 51 Year
  Sex: Female

DRUGS (2)
  1. XELJANZ XR [Suspect]
     Active Substance: TOFACITINIB CITRATE
     Dosage: 11 MG, DAILY
     Route: 048
  2. XELJANZ XR [Suspect]
     Active Substance: TOFACITINIB CITRATE
     Indication: RHEUMATOID ARTHRITIS
     Dosage: 11 MG, DAILY
     Route: 048
     Dates: start: 2018

REACTIONS (9)
  - Amnesia [Not Recovered/Not Resolved]
  - SARS-CoV-2 antibody test positive [Unknown]
  - Pyrexia [Recovered/Resolved]
  - Alopecia [Recovered/Resolved]
  - Pain [Recovered/Resolved]
  - Fatigue [Not Recovered/Not Resolved]
  - Hypersomnia [Recovered/Resolved]
  - Condition aggravated [Unknown]
  - Headache [Unknown]

NARRATIVE: CASE EVENT DATE: 2020
